FAERS Safety Report 9449905 (Version 2)
Quarter: 2013Q3

REPORT INFORMATION
  Report Type: Spontaneous
  Country: US (occurrence: US)
  Receive Date: 20130809
  Receipt Date: 20130812
  Transmission Date: 20140515
  Serious: Yes (Hospitalization)
  Sender: FDA-Public Use
  Company Number: US-PERRIGO-13US007945

PATIENT
  Age: 14 Month
  Sex: 0

DRUGS (6)
  1. IBUPROFEN 20 MG/ML CHILD BERRY 897 [Suspect]
     Indication: PYREXIA
     Dosage: UNK, UNK
     Route: 048
  2. ACETAMINOPHEN 650MG ER 544 [Suspect]
     Indication: PYREXIA
     Dosage: UNK, UNK
     Route: 048
  3. LORAZEPAM [Concomitant]
     Indication: CONVULSION
     Route: 065
  4. PHENYTOIN [Concomitant]
     Indication: CONVULSION
     Route: 065
  5. PHENOBARBITAL [Concomitant]
     Indication: CONVULSION
     Route: 065
  6. CEFTRIAXONE [Concomitant]
     Indication: EVIDENCE BASED TREATMENT
     Dosage: UNK
     Route: 065

REACTIONS (1)
  - Renal failure acute [Recovered/Resolved]
